FAERS Safety Report 5410208-4 (Version None)
Quarter: 2007Q3

REPORT INFORMATION
  Report Type: 
  Country: None (occurrence: None)
  Receive Date: 20070809
  Receipt Date: 20070806
  Transmission Date: 20080115
  Serious: Yes (Other)
  Sender: FDA-Public Use
  Company Number: IE-MERCK-0702GBR00133

PATIENT
  Age: 52 Year
  Sex: Male

DRUGS (2)
  1. ZETIA [Suspect]
     Indication: BLOOD CHOLESTEROL INCREASED
     Route: 048
     Dates: start: 20070210, end: 20070211
  2. ATORVASTATIN CALCIUM [Concomitant]
     Route: 065
     Dates: start: 20061201, end: 20070201

REACTIONS (5)
  - CHROMATURIA [None]
  - DEAFNESS [None]
  - MYALGIA [None]
  - OCULAR ICTERUS [None]
  - PSORIATIC ARTHROPATHY [None]
